FAERS Safety Report 14131295 (Version 1)
Quarter: 2017Q4

REPORT INFORMATION
  Report Type: Spontaneous
  Country: US (occurrence: US)
  Receive Date: 20171026
  Receipt Date: 20171026
  Transmission Date: 20180321
  Serious: No
  Sender: FDA-Public Use
  Company Number: US-ASTRAZENECA-2017SF06516

PATIENT
  Sex: Male
  Weight: 59.9 kg

DRUGS (2)
  1. MOVANTIK [Suspect]
     Active Substance: NALOXEGOL OXALATE
     Indication: CONSTIPATION
     Route: 048
     Dates: start: 201710, end: 201710
  2. MOVANTIK [Suspect]
     Active Substance: NALOXEGOL OXALATE
     Indication: CONSTIPATION
     Route: 048
     Dates: start: 201710

REACTIONS (8)
  - Weight decreased [Unknown]
  - Flatulence [Unknown]
  - Product use issue [Unknown]
  - Muscle spasms [Unknown]
  - Eating disorder [Unknown]
  - Abdominal distension [Unknown]
  - Drug ineffective [Unknown]
  - Nausea [Unknown]
